FAERS Safety Report 8569791-2 (Version None)
Quarter: 2012Q3

REPORT INFORMATION
  Report Type: 
  Country: None (occurrence: None)
  Receive Date: 20120803
  Receipt Date: 20120522
  Transmission Date: 20120928
  Serious: No
  Sender: FDA-Public Use
  Company Number: US-ABBOTT-12P-163-0936728-00

PATIENT
  Sex: Female
  Weight: 77.18 kg

DRUGS (4)
  1. ATENOLOL [Concomitant]
     Indication: HYPERTENSION
  2. ASPIRIN [Concomitant]
     Indication: PRODUCT USED FOR UNKNOWN INDICATION
     Dosage: BEFORE THE NIASPAN
  3. NIASPAN [Suspect]
     Indication: BLOOD CHOLESTEROL INCREASED
     Route: 048
     Dates: start: 20120510
  4. NIASPAN [Suspect]
     Dosage: AT BEDTIME
     Dates: start: 20120513, end: 20120517

REACTIONS (7)
  - PARAESTHESIA [None]
  - FEELING HOT [None]
  - FLUSHING [None]
  - URTICARIA [None]
  - PAIN [None]
  - PRURITUS [None]
  - BURNING SENSATION [None]
